FAERS Safety Report 5931862-4 (Version None)
Quarter: 2008Q4

REPORT INFORMATION
  Report Type: 
  Country: None (occurrence: None)
  Receive Date: 20081027
  Receipt Date: 20081020
  Transmission Date: 20090506
  Serious: Yes (Death, Hospitalization, Other)
  Sender: FDA-Public Use
  Company Number: US-CELGENEUS-163-20785-08101466

PATIENT

DRUGS (2)
  1. THALOMID [Suspect]
     Dosage: 100 MG/DAY WEEKS 1-4, ESCALATED BY 100MG/DAY AT WEEKS 5, 7, 9 AS TOLERATED TO A MAXIMUM OF 400MG/DAY
     Route: 048
  2. TEMOZOLOMIDE [Suspect]
     Route: 065

REACTIONS (8)
  - ARRHYTHMIA [None]
  - BONE MARROW FAILURE [None]
  - CARDIAC DISORDER [None]
  - DEEP VEIN THROMBOSIS [None]
  - DISEASE PROGRESSION [None]
  - DRUG TOXICITY [None]
  - NERVOUS SYSTEM DISORDER [None]
  - PULMONARY EMBOLISM [None]
